FAERS Safety Report 19674699 (Version 1)
Quarter: 2021Q3

REPORT INFORMATION
  Report Type: Spontaneous
  Country: DE (occurrence: DE)
  Receive Date: 20210809
  Receipt Date: 20210809
  Transmission Date: 20211014
  Serious: Yes (Other)
  Sender: FDA-Public Use
  Company Number: DE-BAYER-2021-186919

PATIENT
  Sex: Male

DRUGS (1)
  1. CIPROBAY [CIPROFLOXACIN] [Suspect]
     Active Substance: CIPROFLOXACIN
     Dosage: UNK
     Route: 048
     Dates: start: 201212

REACTIONS (9)
  - Gait disturbance [Not Recovered/Not Resolved]
  - Autoimmune disorder [Not Recovered/Not Resolved]
  - Vitreous detachment [None]
  - Tendonitis [None]
  - Peripheral swelling [None]
  - Muscle spasms [None]
  - Myocardial infarction [None]
  - Pulmonary embolism [None]
  - Arrhythmia [None]
